FAERS Safety Report 21090935 (Version 1)
Quarter: 2022Q3

REPORT INFORMATION
  Report Type: Spontaneous
  Country: FR (occurrence: FR)
  Receive Date: 20220716
  Receipt Date: 20220716
  Transmission Date: 20221026
  Serious: Yes (Death)
  Sender: FDA-Public Use
  Company Number: None

PATIENT
  Age: 41 Year
  Sex: Male

DRUGS (6)
  1. BUPRENORPHINE [Suspect]
     Active Substance: BUPRENORPHINE
     Indication: Product used for unknown indication
     Dosage: UNSPECIFIED
     Route: 065
  2. COCAINE [Suspect]
     Active Substance: COCAINE
     Indication: Product used for unknown indication
     Dosage: UNSPECIFIED
     Route: 065
  3. NORDAZEPAM [Suspect]
     Active Substance: NORDAZEPAM
     Indication: Product used for unknown indication
     Dosage: UNSPECIFIED
     Route: 065
  4. OXAZEPAM [Suspect]
     Active Substance: OXAZEPAM
     Indication: Product used for unknown indication
     Dosage: UNSPECIFIED
     Route: 065
  5. COCAETHYLENE [Suspect]
     Active Substance: COCAETHYLENE
     Indication: Product used for unknown indication
     Dosage: UNSPECIFIED
     Route: 065
  6. BENZOYLECGONINE [Suspect]
     Active Substance: BENZOYLECGONINE
     Indication: Product used for unknown indication
     Dosage: UNSPECIFIED
     Route: 065

REACTIONS (2)
  - Drug abuse [Fatal]
  - Asphyxia [Fatal]

NARRATIVE: CASE EVENT DATE: 20220601
